FAERS Safety Report 17074701 (Version 1)
Quarter: 2019Q4

REPORT INFORMATION
  Report Type: Spontaneous
  Country: US (occurrence: US)
  Receive Date: 20191026
  Receipt Date: 20191026
  Transmission Date: 20200122
  Serious: No
  Sender: FDA-Public Use
  Company Number: None

PATIENT
  Age: 46 Year
  Sex: Female
  Weight: 68 kg

DRUGS (4)
  1. CARBOPLATIN. [Suspect]
     Active Substance: CARBOPLATIN
     Dates: end: 20190926
  2. CYCLOPHOSPHAMIDE. [Suspect]
     Active Substance: CYCLOPHOSPHAMIDE
     Dates: end: 20190711
  3. DOXORUBICIN HYDROCHLORIDE. [Suspect]
     Active Substance: DOXORUBICIN HYDROCHLORIDE
     Dates: end: 20190711
  4. TAXOL [Suspect]
     Active Substance: PACLITAXEL
     Dates: end: 20191010

REACTIONS (8)
  - Abnormal behaviour [None]
  - Blood urea increased [None]
  - Blood creatinine increased [None]
  - Blood pressure decreased [None]
  - Anaemia [None]
  - Loss of consciousness [None]
  - Neutropenia [None]
  - Syncope [None]

NARRATIVE: CASE EVENT DATE: 20191011
